FAERS Safety Report 15761145 (Version 2)
Quarter: 2020Q2

REPORT INFORMATION
  Report Type: Spontaneous
  Country: US (occurrence: US)
  Receive Date: 20181226
  Receipt Date: 20200604
  Transmission Date: 20200713
  Serious: No
  Sender: FDA-Public Use
  Company Number: US-PFIZER INC-2018526798

PATIENT
  Age: 71 Year
  Sex: Female

DRUGS (2)
  1. ARTHROTEC [Suspect]
     Active Substance: DICLOFENAC SODIUM\MISOPROSTOL
     Indication: ARTHRALGIA
  2. ARTHROTEC [Suspect]
     Active Substance: DICLOFENAC SODIUM\MISOPROSTOL
     Indication: BACK PAIN
     Dosage: 1 DF, 3X/DAY
     Route: 048

REACTIONS (5)
  - Hypoaesthesia [Unknown]
  - Off label use [Unknown]
  - Product use in unapproved indication [Unknown]
  - Peripheral vascular disorder [Unknown]
  - Dizziness [Unknown]
